FAERS Safety Report 7131571-2 (Version None)
Quarter: 2010Q4

REPORT INFORMATION
  Report Type: 
  Country: None (occurrence: None)
  Receive Date: 20101201
  Receipt Date: 20101119
  Transmission Date: 20110411
  Serious: Yes (Hospitalization, Other)
  Sender: FDA-Public Use
  Company Number: US-ELI_LILLY_AND_COMPANY-US201011007646

PATIENT
  Sex: Male
  Weight: 87.5 kg

DRUGS (4)
  1. PRASUGREL HYDROCHLORIDE [Suspect]
     Indication: ACUTE CORONARY SYNDROME
     Dosage: 60 MG,ONCE
     Dates: start: 20101012, end: 20101012
  2. SIMVASTATIN [Concomitant]
     Indication: HYPERLIPIDAEMIA
     Dosage: 20 MG, DAILY (1/D)
     Route: 048
  3. ASPIRIN [Concomitant]
     Indication: CORONARY ARTERY DISEASE
     Dosage: 325 MG, DAILY (1/D)
     Route: 048
  4. CARVEDILOL [Concomitant]
     Indication: HYPERTENSION
     Dosage: 25 MG, 2/D
     Route: 048

REACTIONS (1)
  - HOSPITALISATION [None]
